FAERS Safety Report 4835945-1 (Version None)
Quarter: 2005Q4

REPORT INFORMATION
  Report Type: 
  Country: None (occurrence: None)
  Receive Date: 20051118
  Receipt Date: 20051102
  Transmission Date: 20060501
  Serious: Yes (Other)
  Sender: FDA-Public Use
  Company Number: 8010655

PATIENT
  Age: 28 Year
  Sex: Female

DRUGS (2)
  1. KEPPRA [Suspect]
     Indication: EPILEPSY
     Dosage: 500 MG 2/D PO
     Route: 048
     Dates: start: 20040621
  2. LAMOTRIGINE [Concomitant]

REACTIONS (4)
  - NEUTROPENIA [None]
  - RHEUMATOID ARTHRITIS [None]
  - SKIN PAPILLOMA [None]
  - TINEA PEDIS [None]
